FAERS Safety Report 10200852 (Version 3)
Quarter: 2014Q3

REPORT INFORMATION
  Report Type: Spontaneous
  Country: PT (occurrence: PT)
  Receive Date: 20140528
  Receipt Date: 20140904
  Transmission Date: 20150326
  Serious: Yes (Life-Threatening, Hospitalization)
  Sender: FDA-Public Use
  Company Number: PT-AMGEN-PRTSP2014039086

PATIENT
  Age: 70 Year
  Sex: Female
  Weight: 60 kg

DRUGS (7)
  1. GABAPENTINA [Concomitant]
     Active Substance: GABAPENTIN
     Indication: NEURALGIA
     Dosage: 400 MG, 1X/DAY
     Route: 048
  2. OXALIPLATIN ACCORD [Suspect]
     Active Substance: OXALIPLATIN
     Indication: COLON CANCER STAGE IV
     Dosage: 120 MG, CYCLICAL
     Route: 042
     Dates: start: 20140521, end: 20140521
  3. RYTMONORM [Concomitant]
     Active Substance: PROPAFENONE
     Indication: ARRHYTHMIA
     Dosage: 1 DF, QD
     Route: 048
  4. GRANISETRON [Concomitant]
     Active Substance: GRANISETRON
     Indication: PREMEDICATION
     Dosage: 3 MG, CYCLICAL
     Route: 042
     Dates: start: 20140521, end: 20140521
  5. VECTIBIX [Suspect]
     Active Substance: PANITUMUMAB
     Indication: COLON CANCER STAGE IV
     Dosage: 350 MG, CYCLICAL
     Route: 042
     Dates: start: 20140521, end: 20140521
  6. PALEXIA [Concomitant]
     Active Substance: TAPENTADOL HYDROCHLORIDE
     Indication: CANCER PAIN
     Dosage: 1 DF, QD
     Route: 048
  7. ORADEXON                           /00016002/ [Concomitant]
     Indication: PREMEDICATION
     Dosage: 12 MG, CYCLICAL
     Route: 042
     Dates: start: 20140521, end: 20140521

REACTIONS (7)
  - Loss of consciousness [Recovered/Resolved]
  - Respiratory arrest [Recovered/Resolved]
  - Laryngeal discomfort [Recovered/Resolved]
  - Anaphylactic reaction [Recovered/Resolved]
  - Hypotension [Recovered/Resolved]
  - Vomiting [Recovered/Resolved]
  - Pruritus [Recovered/Resolved]

NARRATIVE: CASE EVENT DATE: 20140521
